FAERS Safety Report 5612292-1 (Version None)
Quarter: 2008Q1

REPORT INFORMATION
  Report Type: 
  Country: None (occurrence: None)
  Receive Date: 20080130
  Receipt Date: 20080124
  Transmission Date: 20080703
  Serious: Yes (Life-Threatening, Hospitalization)
  Sender: FDA-Public Use
  Company Number: 2008002186

PATIENT
  Age: 47 Year
  Sex: Male

DRUGS (5)
  1. PHENYLEPHRINE                   (PHENYLEPHRINE) [Suspect]
     Indication: NASOPHARYNGITIS
     Dosage: 36.6 MG, ORAL
     Route: 048
     Dates: start: 20070730, end: 20070730
  2. ACETAMINOPHEN [Suspect]
     Indication: NASOPHARYNGITIS
     Dosage: 3000 MG, ORAL
     Route: 048
     Dates: start: 20070730, end: 20070730
  3. CAFEFEINE                     (CAFFEINE) [Suspect]
     Indication: NASOPHARYNGITIS
     Dosage: 150MG, ORAL
     Route: 048
     Dates: start: 20070730, end: 20070730
  4. ESCITALOPRAM OXALATE [Suspect]
     Dosage: UNSPECIFIED,
  5. MIRTAZAPINE [Suspect]
     Dosage: UNSPECIFIED,

REACTIONS (1)
  - SUBARACHNOID HAEMORRHAGE [None]
